FAERS Safety Report 8249363-X (Version None)
Quarter: 2012Q1

REPORT INFORMATION
  Report Type: 
  Country: None (occurrence: None)
  Receive Date: 20120316
  Receipt Date: 20120308
  Transmission Date: 20120608
  Serious: Yes (Hospitalization)
  Sender: FDA-Public Use
  Company Number: 2011027307

PATIENT
  Sex: Female
  Weight: 113.3993 kg

DRUGS (48)
  1. HIZENTRA (IMMUNOGLOBULIN HUMAN NORMAL) 16G [Suspect]
  2. ALLEGRA [Concomitant]
  3. ADVAIR DISKUS 100/50 [Concomitant]
  4. ZANAFLEX [Concomitant]
  5. XYZAL [Concomitant]
  6. SOMA [Concomitant]
  7. ASTEPRO [Concomitant]
  8. COREG [Concomitant]
  9. CYTOTEC [Concomitant]
  10. LISINOPRIL [Concomitant]
  11. OXYCODONE HCL [Concomitant]
  12. DOMPERIDONE (DOMPERIDONE) [Concomitant]
  13. FENOFIBRATE [Concomitant]
  14. XALATAN [Concomitant]
  15. HIZENTRA (IMMUNOGLOBULIN HUMAN NORMAL) 16G [Suspect]
     Indication: HYPOGAMMAGLOBULINAEMIA
     Dosage: SEE IMAGE
     Route: 058
     Dates: start: 20111214, end: 20111214
  16. HIZENTRA (IMMUNOGLOBULIN HUMAN NORMAL) 16G [Suspect]
     Indication: HYPOGAMMAGLOBULINAEMIA
     Dosage: SEE IMAGE
     Route: 058
     Dates: start: 20110103
  17. HIZENTRA (IMMUNOGLOBULIN HUMAN NORMAL) 16G [Suspect]
     Indication: HYPOGAMMAGLOBULINAEMIA
     Dosage: SEE IMAGE
     Route: 058
     Dates: start: 20110103
  18. NEXIUM [Concomitant]
  19. HYDROCHLOROTHIAZIDE [Concomitant]
  20. LIBRAX [Concomitant]
  21. OXYGEN (OXYGEN) [Concomitant]
  22. CARAFATE [Concomitant]
  23. HIZENTRA (IMMUNOGLOBULIN HUMAN NORMAL) 16G [Suspect]
  24. PROVENTIL [Concomitant]
  25. PHENERGAN [Concomitant]
  26. ATIVAN [Concomitant]
  27. SYNTHROID [Concomitant]
  28. FLONASE NASAL SPRAY (FLUTICASONE PROPIONATE) [Concomitant]
  29. CLONIDINE [Concomitant]
  30. ENOXAPARIN SODIUM [Concomitant]
  31. MIRAPEX [Concomitant]
  32. TUSSIONEX (TUSSIONEX /00140501/) [Concomitant]
  33. CYMBALTA [Concomitant]
  34. ACETAMINOPHEN [Concomitant]
  35. NORVASC [Concomitant]
  36. LOVENOX [Concomitant]
  37. TIGAN [Concomitant]
  38. TIROSINT (LEVOTHYROXINE) [Concomitant]
  39. PERCOCET [Concomitant]
  40. ANTIVERT (MECLOZINE) [Concomitant]
  41. ZETIA [Concomitant]
  42. TRUSOPT [Concomitant]
  43. AMBIEN [Concomitant]
  44. MS CONTIN [Concomitant]
  45. CRESTOR [Concomitant]
  46. HUMULIN (INSULIN HUMAN) [Concomitant]
  47. LEVEMIR [Concomitant]
  48. LASIX [Concomitant]

REACTIONS (6)
  - BRONCHITIS [None]
  - INFUSION SITE REACTION [None]
  - CELLULITIS [None]
  - INFUSION SITE URTICARIA [None]
  - INFUSION SITE SWELLING [None]
  - EFFUSION [None]
